FAERS Safety Report 12218109 (Version 8)
Quarter: 2016Q4

REPORT INFORMATION
  Report Type: Report from Study
  Country: FR (occurrence: FR)
  Receive Date: 20160329
  Receipt Date: 20161227
  Transmission Date: 20170207
  Serious: Yes (Hospitalization)
  Sender: FDA-Public Use
  Company Number: PHHO2016FR004465

PATIENT
  Age: 68 Year
  Sex: Female
  Weight: 82 kg

DRUGS (12)
  1. LERCAN [Concomitant]
     Active Substance: LERCANIDIPINE
     Indication: HYPERTENSION
     Dosage: 10 MG, BID
     Route: 065
     Dates: start: 20150922
  2. MOXONIDINE [Concomitant]
     Active Substance: MOXONIDINE
     Indication: HYPERTENSION
  3. TAHOR [Concomitant]
     Active Substance: ATORVASTATIN CALCIUM
     Indication: HYPERCHOLESTEROLAEMIA
     Dosage: 20 MG, QD
     Route: 065
     Dates: start: 2009
  4. AMN107 [Suspect]
     Active Substance: NILOTINIB
     Indication: CHRONIC MYELOID LEUKAEMIA
     Dosage: 300 MG, BID
     Route: 048
     Dates: end: 20140725
  5. RILMENIDINE [Concomitant]
     Active Substance: RILMENIDINE
     Indication: HYPERTENSION
     Dosage: 1 MG, QD
     Route: 065
     Dates: start: 20141030
  6. SOLUPRED [Concomitant]
     Active Substance: PREDNISOLONE
     Indication: PERIPHERAL SWELLING
     Dosage: UNK
     Route: 065
     Dates: start: 20140302
  7. TAHOR [Concomitant]
     Active Substance: ATORVASTATIN CALCIUM
     Indication: HYPERTRIGLYCERIDAEMIA
  8. BISOPROLOL [Concomitant]
     Active Substance: BISOPROLOL
     Indication: HYPERTENSION
     Dosage: 2.5 MG, QD
     Route: 065
     Dates: start: 20150922
  9. MOXONIDINE [Concomitant]
     Active Substance: MOXONIDINE
     Indication: ATRIAL FIBRILLATION
     Dosage: UNK
     Route: 065
     Dates: start: 20160609
  10. PLAVIX [Concomitant]
     Active Substance: CLOPIDOGREL BISULFATE
     Indication: AORTIC STENOSIS
     Dosage: 75 MG, QD
     Route: 065
     Dates: start: 20160218
  11. AMN107 [Suspect]
     Active Substance: NILOTINIB
     Dosage: 300 MG, BID
     Route: 048
     Dates: start: 20141028, end: 20160627
  12. KARDEGIC [Concomitant]
     Active Substance: ASPIRIN LYSINE
     Indication: ARTERIOSCLEROSIS CORONARY ARTERY
     Dosage: 160 MG, QD
     Route: 065
     Dates: start: 2000

REACTIONS (3)
  - Peripheral artery stenosis [Recovered/Resolved]
  - Carotid artery stenosis [Recovered/Resolved]
  - Coronary artery disease [Recovered/Resolved]

NARRATIVE: CASE EVENT DATE: 20160209
